FAERS Safety Report 8639236 (Version 2)
Quarter: 2012Q4

REPORT INFORMATION
  Report Type: Report from Study
  Country: DK (occurrence: DE)
  Receive Date: 20120627
  Receipt Date: 20121019
  Transmission Date: 20130627
  Serious: Yes (Hospitalization, Other)
  Sender: FDA-Public Use
  Company Number: DE-FRI-1000036609

PATIENT
  Sex: Male

DRUGS (11)
  1. CITALOPRAM [Suspect]
     Indication: DEPRESSION
     Dosage: Up to 20 mg
     Route: 048
     Dates: start: 20110801
  2. SEROQUEL PROLONG [Interacting]
     Indication: ANXIETY
     Dosage: 50 mg
     Route: 048
     Dates: start: 20111114, end: 20111124
  3. SEROQUEL PROLONG [Interacting]
     Indication: HYPOCHONDRIASIS
     Dosage: 100 mg
     Route: 048
     Dates: start: 20111125, end: 20111218
  4. SEROQUEL PROLONG [Interacting]
     Dosage: 150 mg
     Route: 048
     Dates: start: 20111219, end: 20120101
  5. SEROQUEL PROLONG [Interacting]
     Dosage: 200 mg
     Route: 048
     Dates: start: 20120102, end: 20120216
  6. REMERGIL SOLTAB [Interacting]
     Dosage: 15 mg
     Route: 048
     Dates: start: 20120131, end: 20120217
  7. NORVASC [Concomitant]
     Dosage: 5 mg
     Route: 048
     Dates: end: 20120217
  8. APROVEL [Concomitant]
     Dosage: 150 mg
     Route: 048
  9. COAPROVEL [Concomitant]
     Dosage: 300 mg irbesartan / 12.5 mg hydrochlorothiazide
     Route: 048
  10. HALCION [Concomitant]
     Dosage: 0.25 - 0.75 mg
     Route: 048
  11. DIPIPERON [Concomitant]
     Dosage: 40 mg
     Route: 048
     Dates: start: 20120102

REACTIONS (3)
  - Somnambulism [Recovered/Resolved]
  - Confusional state [Recovered/Resolved]
  - Potentiating drug interaction [Recovered/Resolved]
